FAERS Safety Report 23330612 (Version 1)
Quarter: 2023Q4

REPORT INFORMATION
  Report Type: Spontaneous
  Country: IN (occurrence: IN)
  Receive Date: 20231222
  Receipt Date: 20231222
  Transmission Date: 20240110
  Serious: Yes (Other)
  Sender: FDA-Public Use
  Company Number: IN-Accord-396746

PATIENT
  Age: 63 Year
  Sex: Male

DRUGS (1)
  1. MITOMYCIN [Suspect]
     Active Substance: MITOMYCIN
     Indication: Trabeculectomy

REACTIONS (3)
  - Conjunctival filtering bleb leak [Recovered/Resolved]
  - Conjunctival ulcer [Recovered/Resolved]
  - Hypotony maculopathy [Recovering/Resolving]
